FAERS Safety Report 5019690-8 (Version None)
Quarter: 2006Q2

REPORT INFORMATION
  Report Type: 
  Country: None (occurrence: None)
  Receive Date: 20060601
  Receipt Date: 20060524
  Transmission Date: 20061013
  Serious: Yes (Other)
  Sender: FDA-Public Use
  Company Number: 2006067977

PATIENT
  Sex: 0

DRUGS (2)
  1. LIPITOR [Suspect]
     Indication: ILL-DEFINED DISORDER
     Dosage: UNKNOWN, ORAL
     Route: 048
  2. AVANDIA [Suspect]
     Indication: ILL-DEFINED DISORDER
     Dosage: UNKNOWN, ORAL
     Route: 048

REACTIONS (3)
  - ARTHRALGIA [None]
  - MYALGIA [None]
  - PULMONARY OEDEMA [None]
